FAERS Safety Report 21952173 (Version 1)
Quarter: 2023Q1

REPORT INFORMATION
  Report Type: Other
  Country: CA (occurrence: CA)
  Receive Date: 20230203
  Receipt Date: 20230203
  Transmission Date: 20230418
  Serious: Yes (Other)
  Sender: FDA-Public Use
  Company Number: CA-GE HEALTHCARE-2023CSU000718

PATIENT
  Age: 72 Year
  Sex: Female

DRUGS (4)
  1. OMNIPAQUE [Suspect]
     Active Substance: IOHEXOL
     Indication: Cardiac imaging procedure
     Dosage: 350 MG/ML, SINGLE
     Route: 040
  2. OMNIPAQUE [Suspect]
     Active Substance: IOHEXOL
     Indication: Product used for unknown indication
  3. METOPROLOL [Concomitant]
     Active Substance: METOPROLOL
     Route: 065
  4. NITROGLYCERIN [Concomitant]
     Active Substance: NITROGLYCERIN

REACTIONS (2)
  - Sneezing [Unknown]
  - Nasal congestion [Unknown]
